FAERS Safety Report 25456636 (Version 1)
Quarter: 2025Q2

REPORT INFORMATION
  Report Type: Spontaneous
  Country: ES (occurrence: ES)
  Receive Date: 20250619
  Receipt Date: 20250619
  Transmission Date: 20250716
  Serious: Yes (Hospitalization)
  Sender: TAKEDA
  Company Number: ES-CHEPLA-2025007016

PATIENT
  Age: 79 Year
  Sex: Male

DRUGS (11)
  1. ANAGRELIDE [Suspect]
     Active Substance: ANAGRELIDE
     Indication: Essential thrombocythaemia
     Dosage: 1 MILLIGRAM, QD
  2. PREDNISONE [Suspect]
     Active Substance: PREDNISONE
     Indication: Tubulointerstitial nephritis
     Dosage: 1 MILLIGRAM/KILOGRAM, QD
  3. CARVEDILOL [Suspect]
     Active Substance: CARVEDILOL
     Indication: Product used for unknown indication
     Dosage: 2.5 MILLIGRAM, QD
  4. HYDROXYUREA [Suspect]
     Active Substance: HYDROXYUREA
     Indication: Essential thrombocythaemia
     Dosage: 500 MILLIGRAM, QD
  5. ACENOCOUMAROL [Suspect]
     Active Substance: ACENOCOUMAROL
     Indication: Atrial fibrillation
  6. FUROSEMIDE [Suspect]
     Active Substance: FUROSEMIDE
     Indication: Diuretic therapy
     Dosage: 40 MILLIGRAM, QD
  7. FUROSEMIDE [Suspect]
     Active Substance: FUROSEMIDE
     Dosage: 125 MILLIGRAM, Q8HR
  8. DARBEPOETIN ALFA [Suspect]
     Active Substance: DARBEPOETIN ALFA
     Indication: Anaemia
     Dosage: 80 MICROGRAM, 1/WEEK
  9. DARBEPOETIN ALFA [Suspect]
     Active Substance: DARBEPOETIN ALFA
     Indication: Chronic kidney disease
  10. IRON [Suspect]
     Active Substance: IRON
     Indication: Product used for unknown indication
  11. METHYLPREDNISOLONE [Concomitant]
     Active Substance: METHYLPREDNISOLONE
     Indication: Tubulointerstitial nephritis

REACTIONS (3)
  - Acute kidney injury [Unknown]
  - Renal tubular necrosis [Unknown]
  - Off label use [Unknown]
